FAERS Safety Report 9452607 (Version 1)
Quarter: 2013Q3

REPORT INFORMATION
  Report Type: Spontaneous
  Country: US (occurrence: US)
  Receive Date: 20130812
  Receipt Date: 20130812
  Transmission Date: 20140515
  Serious: No
  Sender: FDA-Public Use
  Company Number: US-PFIZER INC-2013233133

PATIENT
  Age: 82 Year
  Sex: Female
  Weight: 63.49 kg

DRUGS (4)
  1. LYRICA [Suspect]
     Indication: NEUROPATHY PERIPHERAL
     Dosage: 100 MG, 3X/DAY
     Dates: start: 2011
  2. LYRICA [Suspect]
     Dosage: 100 MG, 1X/DAY
     Dates: start: 20130726
  3. LEVOTHYROXINE [Concomitant]
     Indication: THYROID DISORDER
     Dosage: UNK, 1X/DAY
  4. GABAPENTIN [Concomitant]
     Dosage: 400 MG, 4X/DAY
     Dates: start: 2011

REACTIONS (7)
  - Intentional drug misuse [Unknown]
  - Drug ineffective [Unknown]
  - Pain [Not Recovered/Not Resolved]
  - Crying [Not Recovered/Not Resolved]
  - Burning sensation [Not Recovered/Not Resolved]
  - Insomnia [Not Recovered/Not Resolved]
  - Pain in extremity [Not Recovered/Not Resolved]
